FAERS Safety Report 25021653 (Version 1)
Quarter: 2025Q1

REPORT INFORMATION
  Report Type: Spontaneous
  Country: US (occurrence: US)
  Receive Date: 20250228
  Receipt Date: 20250228
  Transmission Date: 20250408
  Serious: No
  Sender: ELI LILLY AND COMPANY
  Company Number: US-ELI_LILLY_AND_COMPANY-US202502020435

PATIENT
  Age: 16 Year
  Sex: Female

DRUGS (2)
  1. TALTZ [Suspect]
     Active Substance: IXEKIZUMAB
     Indication: Psoriasis
     Route: 065
     Dates: start: 202502
  2. TALTZ [Suspect]
     Active Substance: IXEKIZUMAB
     Route: 065

REACTIONS (1)
  - Injection site urticaria [Unknown]

NARRATIVE: CASE EVENT DATE: 20250201
